FAERS Safety Report 19951790 (Version 1)
Quarter: 2021Q4

REPORT INFORMATION
  Report Type: Spontaneous
  Country: US (occurrence: US)
  Receive Date: 20211013
  Receipt Date: 20211013
  Transmission Date: 20220303
  Serious: Yes (Death)
  Sender: FDA-Public Use
  Company Number: US-PFIZER INC-2020465994

PATIENT
  Age: 87 Year
  Sex: Female
  Weight: 38.56 kg

DRUGS (2)
  1. VFEND [Suspect]
     Active Substance: VORICONAZOLE
     Indication: Mycetoma mycotic
     Dosage: 200 MG, 2X/DAY (TAKE 1 TABLET(200MG))
     Route: 048
  2. LISINOPRIL [Concomitant]
     Active Substance: LISINOPRIL
     Indication: Hypertension
     Dosage: UNK, 1X/DAY

REACTIONS (2)
  - Neurodegenerative disorder [Fatal]
  - Off label use [Unknown]

NARRATIVE: CASE EVENT DATE: 20210913
